FAERS Safety Report 6319201-0 (Version None)
Quarter: 2009Q3

REPORT INFORMATION
  Report Type: 
  Country: None (occurrence: None)
  Receive Date: 20090821
  Receipt Date: 20080812
  Transmission Date: 20100115
  Serious: No
  Sender: FDA-Public Use
  Company Number: US-ABBOTT-08P-163-0470534-00

PATIENT
  Age: 66 Year
  Sex: Female

DRUGS (5)
  1. NIASPAN [Suspect]
     Indication: HYPERCHOLESTEROLAEMIA
     Route: 048
     Dates: start: 20080624
  2. CLOPIDOGREL [Concomitant]
     Indication: DRUG USE FOR UNKNOWN INDICATION
     Dosage: IN A.M.
     Route: 048
  3. WELCOR [Concomitant]
     Indication: DRUG USE FOR UNKNOWN INDICATION
  4. ALKA-SELTZER [Concomitant]
     Indication: DRUG USE FOR UNKNOWN INDICATION
     Dosage: AT BEDTIME
     Route: 048
  5. EZETIMIBE [Concomitant]
     Indication: DRUG USE FOR UNKNOWN INDICATION
     Dosage: AT BEDTIME
     Route: 048

REACTIONS (2)
  - ABDOMINAL DISTENSION [None]
  - WEIGHT DECREASED [None]
